FAERS Safety Report 12627062 (Version 6)
Quarter: 2017Q2

REPORT INFORMATION
  Report Type: Report from Study
  Country: TR (occurrence: TR)
  Receive Date: 20160805
  Receipt Date: 20170621
  Transmission Date: 20170830
  Serious: Yes (Death, Life-Threatening, Hospitalization)
  Sender: FDA-Public Use
  Company Number: TR-CELGENEUS-TUR-2016080662

PATIENT
  Age: 72 Year
  Sex: Male
  Weight: 70 kg

DRUGS (104)
  1. PREDNISONE. [Suspect]
     Active Substance: PREDNISONE
     Indication: DIFFUSE LARGE B-CELL LYMPHOMA
     Dosage: 100 MILLIGRAM
     Route: 048
     Dates: start: 20160728, end: 20160801
  2. KLOROBEN [Concomitant]
     Dosage: 30 MILLIGRAM
     Route: 065
     Dates: start: 20160715, end: 20160730
  3. GRATELY [Concomitant]
     Dosage: 3/3MG/ML
     Route: 041
     Dates: start: 20160716, end: 20160722
  4. LANTUS SOLOSTAR [Concomitant]
     Active Substance: INSULIN GLARGINE
     Dosage: 4 IU (INTERNATIONAL UNIT)
     Route: 058
     Dates: start: 20160720, end: 20160720
  5. NOVORAPID [Concomitant]
     Active Substance: INSULIN ASPART
     Indication: DIABETES MELLITUS
     Dosage: 300 MILLIGRAM/MILLILITERS
     Route: 058
     Dates: start: 20160719
  6. NOVORAPID [Concomitant]
     Active Substance: INSULIN ASPART
     Dosage: 6IU
     Route: 058
     Dates: start: 20160801
  7. URIKOLIZ [Concomitant]
     Active Substance: ALLOPURINOL
     Indication: PROPHYLAXIS
     Dosage: 300 MILLIGRAM
     Route: 048
     Dates: start: 20160725
  8. TERNAVIR [Concomitant]
     Indication: ANTIVIRAL PROPHYLAXIS
     Dosage: 245 MILLIGRAM
     Route: 048
     Dates: start: 20160728, end: 20160730
  9. TARKA [Concomitant]
     Active Substance: TRANDOLAPRIL\VERAPAMIL HYDROCHLORIDE
     Indication: HYPERTENSION
     Dosage: 180 MILLIGRAM
     Route: 048
     Dates: end: 20160717
  10. DECOL [Concomitant]
     Indication: NAUSEA
     Dosage: 0.5 MILLILITER
     Route: 058
     Dates: start: 20160718, end: 20160718
  11. CONTRAMAL [Concomitant]
     Active Substance: TRAMADOL HYDROCHLORIDE
     Indication: PAIN
     Dosage: 50MG
     Route: 058
     Dates: start: 20160718, end: 20160718
  12. PROCTOLOG SUPPLEMENTATION [Concomitant]
     Indication: PROCTALGIA
     Dosage: 1 APPLICATION
     Route: 054
     Dates: start: 20160726, end: 20160726
  13. CALCIUM PICKEN [Concomitant]
     Indication: HYPOCALCAEMIA
     Dosage: 5 MILLILITER
     Route: 041
     Dates: start: 20160725, end: 20160725
  14. ENEMA (SODIUM PHOSPHATE, DIBASIC\SODIUM PHOSPHATE, MONOBASIC) [Concomitant]
     Active Substance: SODIUM PHOSPHATE, DIBASIC\SODIUM PHOSPHATE, MONOBASIC
     Indication: CONSTIPATION
     Dosage: 135 MILLILITER
     Route: 054
     Dates: start: 20160727, end: 20160727
  15. FLOTIC [Concomitant]
     Dosage: 400 MILLIGRAM
     Route: 041
     Dates: start: 20160719, end: 20160725
  16. RITUXIMAB [Suspect]
     Active Substance: RITUXIMAB
     Indication: DIFFUSE LARGE B-CELL LYMPHOMA
     Dosage: 375 MILLIGRAM
     Route: 041
     Dates: start: 20160728, end: 20160729
  17. VINCRISTINE [Suspect]
     Active Substance: VINCRISTINE
     Indication: DIFFUSE LARGE B-CELL LYMPHOMA
     Dosage: 1.4 MILLIGRAM
     Route: 041
     Dates: start: 20160729, end: 20160729
  18. KLOROBEN [Concomitant]
     Indication: PROPHYLAXIS
     Dosage: 600 MILLILITER
     Route: 065
     Dates: start: 20160715
  19. GRATELY [Concomitant]
     Dosage: 3/3MG/ML
     Route: 041
     Dates: start: 20160726, end: 20160727
  20. ESOBLOK [Concomitant]
     Indication: PROPHYLAXIS AGAINST GASTROINTESTINAL ULCER
     Dosage: 80 MILLIGRAM
     Route: 041
     Dates: start: 20160715
  21. EMOJECT [Concomitant]
     Indication: ANTIEMETIC SUPPORTIVE CARE
     Dosage: 120 MILLIGRAM
     Route: 041
     Dates: start: 20160726, end: 20160726
  22. NOVORAPID [Concomitant]
     Active Substance: INSULIN ASPART
     Dosage: 6 MS
     Route: 058
     Dates: start: 20160718, end: 20160718
  23. KEMOPRIM [Concomitant]
     Dosage: 800/160MG
     Route: 048
     Dates: start: 20160729, end: 20160729
  24. PULCET [Concomitant]
     Active Substance: PANTOPRAZOLE SODIUM
     Indication: GASTRITIS PROPHYLAXIS
     Dosage: 40 MILLIGRAM
     Route: 048
     Dates: start: 20160714, end: 20160715
  25. LASIX [Concomitant]
     Active Substance: FUROSEMIDE
     Dosage: 20/2 MG/ML
     Route: 041
     Dates: start: 20160731, end: 20160731
  26. FLUZAMED [Concomitant]
     Indication: INFECTION PROPHYLAXIS
     Dosage: 200 MILLIGRAM
     Route: 041
     Dates: start: 20160715, end: 20160721
  27. DECORT [Concomitant]
     Indication: DRUG HYPERSENSITIVITY
     Dosage: 8MG
     Route: 041
     Dates: start: 20160728, end: 20160728
  28. CALCIUMAX [Concomitant]
     Indication: ALLERGY PROPHYLAXIS
     Dosage: 2ML
     Route: 041
     Dates: start: 20160728, end: 20160728
  29. HUMULIN RETROL [Concomitant]
     Indication: DIABETES MELLITUS
     Dosage: 4ML
     Route: 041
     Dates: start: 20160715, end: 20160716
  30. CIPRO [Concomitant]
     Active Substance: CIPROFLOXACIN HYDROCHLORIDE
     Indication: PNEUMONIA
     Dosage: 1000 MILLIGRAM
     Route: 041
     Dates: start: 20160718, end: 20160718
  31. ZOLAMID [Concomitant]
     Indication: DELIRIUM
     Dosage: 3.75 MILLIGRAM
     Route: 041
     Dates: start: 20160731
  32. FUNGOSTATIN [Concomitant]
     Indication: MUCOSAL INFLAMMATION
     Dosage: 100U/ML
     Route: 048
     Dates: start: 20160715, end: 20160730
  33. NOVORAPID [Concomitant]
     Active Substance: INSULIN ASPART
     Dosage: 8IU
     Route: 058
     Dates: start: 20160722, end: 20160722
  34. NOVORAPID [Concomitant]
     Active Substance: INSULIN ASPART
     Dosage: 10IU
     Route: 058
     Dates: start: 20160723, end: 20160725
  35. NOVORAPID [Concomitant]
     Active Substance: INSULIN ASPART
     Dosage: 15IU
     Route: 058
     Dates: start: 20160730, end: 20160730
  36. KEMOPRIM [Concomitant]
     Indication: ANTIFUNGAL PROPHYLAXIS
     Dosage: 800/160MG
     Route: 048
     Dates: start: 20160723, end: 20160725
  37. KEMOPRIM [Concomitant]
     Dosage: 800/160MG
     Route: 048
     Dates: start: 20160731
  38. OSTEVIT D3 [Concomitant]
     Dosage: 1500 MILLIGRAM
     Route: 048
     Dates: start: 20160725, end: 20160730
  39. KYTRIL [Concomitant]
     Active Substance: GRANISETRON HYDROCHLORIDE
     Indication: NAUSEA
     Dosage: 4 MILLIGRAM
     Route: 041
     Dates: start: 20160715, end: 20160716
  40. CLEXANE [Concomitant]
     Active Substance: ENOXAPARIN SODIUM
     Indication: THROMBOSIS PROPHYLAXIS
     Dosage: 400/0.4 US/MC
     Route: 058
     Dates: start: 20160718, end: 20160718
  41. AVIL [Concomitant]
     Active Substance: PHENIRAMINE
     Indication: DRUG HYPERSENSITIVITY
     Dosage: 2ML
     Route: 041
     Dates: start: 20160728, end: 20160728
  42. FLOTIC [Concomitant]
     Indication: PNEUMONIA
     Dosage: 400 MILLIGRAM
     Route: 041
     Dates: start: 20160715, end: 20160717
  43. PAROL [Concomitant]
     Active Substance: ACETAMINOPHEN
     Indication: PYREXIA
     Dosage: 10MG
     Route: 041
     Dates: start: 20160731, end: 20160731
  44. S-OLICLINOMEL [Concomitant]
     Indication: NAUSEA
     Dosage: 1500ML
     Route: 041
     Dates: start: 20160714, end: 20160731
  45. CYCLOPHOSPHAMIDE. [Suspect]
     Active Substance: CYCLOPHOSPHAMIDE
     Indication: DIFFUSE LARGE B-CELL LYMPHOMA
     Dosage: 1750 MILLIGRAM
     Route: 041
     Dates: start: 20160729, end: 20160729
  46. NOVORAPID [Concomitant]
     Active Substance: INSULIN ASPART
     Dosage: 10IU
     Route: 058
     Dates: start: 20160727, end: 20160727
  47. TRADOLEX [Concomitant]
     Indication: ABDOMINAL PAIN
     Dosage: 100 MILLIGRAM
     Route: 041
     Dates: start: 20160724, end: 20160731
  48. NORODOL [Concomitant]
     Indication: DELIRIUM
     Dosage: 5/1MG/ML
     Route: 048
     Dates: start: 20160730
  49. NORODOL [Concomitant]
     Dosage: 5MG/ML
     Route: 048
     Dates: start: 20160728, end: 20160730
  50. ALDACTONE [Concomitant]
     Active Substance: SPIRONOLACTONE
     Indication: ASCITES
     Dosage: 25 MILLIGRAM
     Route: 041
     Dates: start: 20160715, end: 20160728
  51. HUMULIN RETROL [Concomitant]
     Dosage: 13IU
     Route: 041
     Dates: start: 20160731, end: 20160731
  52. ATORAX [Concomitant]
     Indication: DRUG HYPERSENSITIVITY
     Dosage: 8MG
     Route: 041
     Dates: start: 20160728, end: 20160728
  53. VASTAREL [Concomitant]
     Active Substance: TRIMETAZIDINE DIHYDROCHLORIDE
     Indication: HYPERTENSION
     Dosage: 40 MILLIGRAM
     Route: 048
     Dates: start: 20160715
  54. LANTUS SOLOSTAR [Concomitant]
     Active Substance: INSULIN GLARGINE
     Dosage: 14 IU (INTERNATIONAL UNIT)
     Route: 058
     Dates: start: 20160729, end: 20160729
  55. NOVORAPID [Concomitant]
     Active Substance: INSULIN ASPART
     Dosage: 16IU
     Route: 058
     Dates: start: 20160731, end: 20160731
  56. URIKOLIZ [Concomitant]
     Active Substance: ALLOPURINOL
     Dosage: 600 MILLIGRAM
     Route: 048
     Dates: start: 20160716, end: 20160716
  57. ATIVAN EXPEDIT [Concomitant]
     Indication: SLEEP DISORDER
     Dosage: 1 MILLIGRAM
     Route: 048
     Dates: start: 20160723, end: 20160730
  58. VALTREX [Concomitant]
     Active Substance: VALACYCLOVIR HYDROCHLORIDE
     Indication: ANTIVIRAL PROPHYLAXIS
     Dosage: 500 MILLIGRAM
     Route: 048
     Dates: start: 20160725, end: 20160729
  59. METHYLPREDNISOLONE. [Concomitant]
     Active Substance: METHYLPREDNISOLONE
     Indication: DRUG HYPERSENSITIVITY
     Dosage: 20MG
     Route: 041
     Dates: start: 20160728, end: 20160728
  60. METPAMID [Concomitant]
     Active Substance: METOCLOPRAMIDE
     Dosage: 10 MILLIGRAM
     Route: 041
     Dates: start: 20160724, end: 20160724
  61. BACTRIM [Concomitant]
     Active Substance: SULFAMETHOXAZOLE\TRIMETHOPRIM
     Dosage: 800/160 MG/MG
     Route: 058
     Dates: start: 20160728, end: 20160728
  62. DUPHALAC [Concomitant]
     Active Substance: LACTULOSE
     Indication: CONSTIPATION
     Dosage: 30 MILLILITER
     Route: 041
     Dates: start: 20160726, end: 20160727
  63. CALCIUM PICKEN [Concomitant]
     Dosage: 5 MILLILITER
     Route: 041
     Dates: start: 20160731
  64. PAROL [Concomitant]
     Active Substance: ACETAMINOPHEN
     Indication: DRUG HYPERSENSITIVITY
     Dosage: 10MG
     Route: 041
     Dates: start: 20160731, end: 20160731
  65. DOXORUBICIN [Suspect]
     Active Substance: DOXORUBICIN
     Indication: DIFFUSE LARGE B-CELL LYMPHOMA
     Dosage: 50 MILLIGRAM
     Route: 041
     Dates: start: 20160729, end: 20160729
  66. ENOX [Concomitant]
     Indication: THROMBOSIS PROPHYLAXIS
     Dosage: 40/0.4 MILLIGRAM/ML
     Route: 058
     Dates: start: 20160718, end: 20160731
  67. LANTUS SOLOSTAR [Concomitant]
     Active Substance: INSULIN GLARGINE
     Dosage: 14 IU (INTERNATIONAL UNIT)
     Route: 058
     Dates: start: 20160723, end: 20160727
  68. LANTUS SOLOSTAR [Concomitant]
     Active Substance: INSULIN GLARGINE
     Dosage: 20 IU (INTERNATIONAL UNIT)
     Route: 058
     Dates: start: 20160730, end: 20160730
  69. NOVORAPID [Concomitant]
     Active Substance: INSULIN ASPART
     Dosage: 4 IU (INTERNATIONAL UNIT)
     Route: 058
     Dates: start: 20160720, end: 20160720
  70. NOVORAPID [Concomitant]
     Active Substance: INSULIN ASPART
     Dosage: 16 IU (INTERNATIONAL UNIT)
     Route: 058
     Dates: start: 20160721, end: 20160721
  71. NOVORAPID [Concomitant]
     Active Substance: INSULIN ASPART
     Dosage: 10IU
     Route: 058
     Dates: start: 20160726, end: 20160726
  72. NOVORAPID [Concomitant]
     Active Substance: INSULIN ASPART
     Dosage: 10IU
     Route: 058
     Dates: start: 20160730, end: 20160730
  73. NOVORAPID [Concomitant]
     Active Substance: INSULIN ASPART
     Dosage: 18IU
     Route: 058
     Dates: start: 20160716, end: 20160716
  74. NOVORAPID [Concomitant]
     Active Substance: INSULIN ASPART
     Dosage: 26IU
     Route: 058
     Dates: start: 20160719, end: 20160719
  75. URIKOLIZ [Concomitant]
     Active Substance: ALLOPURINOL
     Dosage: 300 MILLIGRAM
     Route: 048
     Dates: start: 20160723, end: 20160731
  76. METPAMID [Concomitant]
     Active Substance: METOCLOPRAMIDE
     Indication: NAUSEA
     Dosage: 30 MILLIGRAM
     Route: 041
     Dates: start: 20160715, end: 20160722
  77. DEKOL [Concomitant]
     Indication: NAUSEA
     Dosage: 5 MILLILITER
     Route: 041
     Dates: start: 20160724, end: 20160724
  78. AVIL [Concomitant]
     Active Substance: PHENIRAMINE
     Dosage: 2 MILLILITER
     Route: 041
     Dates: start: 20160728, end: 20160729
  79. ANESTOL [Concomitant]
     Indication: PROCTALGIA
     Dosage: 20 MILLILITER
     Route: 061
     Dates: start: 20160726, end: 20160726
  80. PAROL [Concomitant]
     Active Substance: ACETAMINOPHEN
     Indication: ANXIETY
     Dosage: 25MG
     Route: 048
     Dates: start: 20160722, end: 20160722
  81. LUMEN [Concomitant]
     Indication: CANDIDA INFECTION
     Dosage: 2/50MG/ML
     Route: 041
     Dates: start: 20160715
  82. LUMEN [Concomitant]
     Dosage: 12 MILLIGRAM
     Route: 041
     Dates: start: 20160721
  83. GRATELY [Concomitant]
     Indication: NAUSEA
     Dosage: 3/3MG/ML
     Route: 041
     Dates: start: 20160724, end: 20160724
  84. GRATELY [Concomitant]
     Dosage: 3/3MG/ML
     Route: 041
     Dates: start: 20160730, end: 20160730
  85. LANTUS SOLOSTAR [Concomitant]
     Active Substance: INSULIN GLARGINE
     Dosage: 10 IU (INTERNATIONAL UNIT)
     Route: 058
     Dates: start: 20160719, end: 20160719
  86. LANTUS SOLOSTAR [Concomitant]
     Active Substance: INSULIN GLARGINE
     Dosage: 18 IU (INTERNATIONAL UNIT)
     Route: 058
     Dates: start: 20160731, end: 20160731
  87. NOVORAPID [Concomitant]
     Active Substance: INSULIN ASPART
     Dosage: 8 IU (INTERNATIONAL UNIT)
     Route: 058
     Dates: start: 20160720, end: 20160720
  88. TRADOLEX [Concomitant]
     Indication: PELVIC PAIN
  89. OSTEVIT D3 [Concomitant]
     Indication: HYPOCALCAEMIA
     Dosage: UNKNOWN
     Route: 048
     Dates: start: 20160726
  90. PULCET [Concomitant]
     Active Substance: PANTOPRAZOLE SODIUM
     Dosage: 8 MILLIGRAM
     Route: 041
     Dates: start: 20160731, end: 20160731
  91. CC-5013 [Suspect]
     Active Substance: LENALIDOMIDE
     Indication: DIFFUSE LARGE B-CELL LYMPHOMA
     Dosage: 15 MILLIGRAM
     Route: 048
     Dates: start: 20160728, end: 20160731
  92. STABLON [Concomitant]
     Active Substance: TIANEPTINE
     Indication: ANXIETY
     Dosage: 25 MILLIGRAM
     Route: 048
     Dates: start: 20160714, end: 20160731
  93. GRATELY [Concomitant]
     Indication: ANTIEMETIC SUPPORTIVE CARE
     Dosage: 3/3MG/ML
     Route: 041
     Dates: start: 20160715
  94. EMOJECT [Concomitant]
     Indication: NAUSEA
     Route: 041
     Dates: start: 20160730, end: 20160730
  95. LANTUS SOLOSTAR [Concomitant]
     Active Substance: INSULIN GLARGINE
     Indication: DIABETES MELLITUS
     Dosage: 100 MILLIGRAM/MILLILITERS
     Route: 058
     Dates: start: 20160719
  96. LANTUS SOLOSTAR [Concomitant]
     Active Substance: INSULIN GLARGINE
     Dosage: 10 IU (INTERNATIONAL UNIT)
     Route: 058
     Dates: start: 20160721, end: 20160722
  97. GLIFIX [Concomitant]
     Indication: DIABETES MELLITUS
     Dosage: 30 MILLIGRAM
     Route: 048
     Dates: start: 20160504, end: 20160728
  98. LASIX [Concomitant]
     Active Substance: FUROSEMIDE
     Indication: PLEURAL EFFUSION
     Dosage: 20 MILLIGRAM
     Route: 041
     Dates: start: 20160715, end: 20160719
  99. CIPRASID [Concomitant]
     Indication: PNEUMONIA
     Dosage: 1000 MILLIGRAM
     Route: 048
     Dates: start: 20160718, end: 20160719
  100. BACTRIM [Concomitant]
     Active Substance: SULFAMETHOXAZOLE\TRIMETHOPRIM
     Indication: PNEUMONIA
     Dosage: 400/80 MG/MG
     Route: 058
     Dates: start: 20160731, end: 20160731
  101. BACTRIM [Concomitant]
     Active Substance: SULFAMETHOXAZOLE\TRIMETHOPRIM
     Indication: PNEUMOCYSTIS JIROVECII PNEUMONIA
     Dosage: 800/160 MG/MG
     Route: 058
     Dates: start: 20160725, end: 20160725
  102. MAGNESIE CALORIE [Concomitant]
     Indication: CONSTIPATION
     Dosage: 400 MILLIGRAM
     Route: 048
     Dates: start: 20160725, end: 20160726
  103. FLOTIC [Concomitant]
     Dosage: 200 MILLIGRAM
     Route: 041
     Dates: start: 20160731, end: 20160731
  104. DORMICUM [Concomitant]
     Indication: DELIRIUM
     Dosage: 2 MG/H
     Route: 041
     Dates: start: 20160731

REACTIONS (5)
  - Urinary retention [Not Recovered/Not Resolved]
  - Diffuse large B-cell lymphoma [Fatal]
  - Pulmonary sepsis [Not Recovered/Not Resolved]
  - Tumour lysis syndrome [Fatal]
  - Acute kidney injury [Not Recovered/Not Resolved]

NARRATIVE: CASE EVENT DATE: 20160730
